FAERS Safety Report 6108831-7 (Version None)
Quarter: 2009Q1

REPORT INFORMATION
  Report Type: 
  Country: None (occurrence: None)
  Receive Date: 20090310
  Receipt Date: 20090304
  Transmission Date: 20090719
  Serious: Yes (Hospitalization)
  Sender: FDA-Public Use
  Company Number: FR-BRISTOL-MYERS SQUIBB COMPANY-14533046

PATIENT
  Age: 72 Year
  Sex: Female

DRUGS (6)
  1. COAPROVEL TABS 300MG/12.5MG [Suspect]
     Indication: HYPERTENSION
     Dosage: 1 DF = 300MG/12.5MG
     Dates: start: 20061201, end: 20090113
  2. URISPAS [Suspect]
     Indication: MICTURITION DISORDER
     Dates: start: 20081117, end: 20081230
  3. COLPOTROPHINE [Suspect]
     Indication: MUCOSAL DRYNESS
     Dates: start: 20081117, end: 20081230
  4. FOSAMAX [Suspect]
     Indication: OSTEOPOROSIS
     Dates: start: 20070601, end: 20090108
  5. EPTAVIT [Suspect]
     Indication: VITAMIN D DEFICIENCY
     Dates: start: 20070601, end: 20090113
  6. MEDIATENSYL [Suspect]
     Indication: HYPERTENSION
     Dates: start: 20061201, end: 20090113

REACTIONS (1)
  - DRUG RASH WITH EOSINOPHILIA AND SYSTEMIC SYMPTOMS [None]
